FAERS Safety Report 4520670-7 (Version None)
Quarter: 2004Q4

REPORT INFORMATION
  Report Type: 
  Country: None (occurrence: None)
  Receive Date: 20041207
  Receipt Date: 20041127
  Transmission Date: 20050328
  Serious: Yes (Life-Threatening, Hospitalization, Disabling)
  Sender: FDA-Public Use
  Company Number: US-MERCK-0412USA00037

PATIENT
  Sex: Female

DRUGS (2)
  1. ZOCOR [Suspect]
     Route: 048
  2. LIPITOR [Concomitant]
     Route: 065

REACTIONS (4)
  - DIALYSIS [None]
  - MYALGIA [None]
  - MYOPATHY [None]
  - RENAL FAILURE [None]
